FAERS Safety Report 6947975-4 (Version None)
Quarter: 2010Q3

REPORT INFORMATION
  Report Type: 
  Country: None (occurrence: None)
  Receive Date: 20100825
  Receipt Date: 20100809
  Transmission Date: 20110219
  Serious: Yes (Other)
  Sender: FDA-Public Use
  Company Number: ACO_01733_2010

PATIENT
  Sex: Female
  Weight: 86.1834 kg

DRUGS (9)
  1. AMPYRA [Suspect]
     Indication: GAIT DISTURBANCE
     Dosage: 10 MG BID ORAL
     Route: 048
     Dates: start: 20100501, end: 20100601
  2. XANAX [Concomitant]
  3. HYDROCODONE [Concomitant]
  4. AVINZA [Concomitant]
  5. NUVIGIL [Concomitant]
  6. PROTONIX [Concomitant]
  7. ZEBETA [Concomitant]
  8. GEODON [Concomitant]
  9. TYLENOL-500 [Concomitant]

REACTIONS (4)
  - ABDOMINAL PAIN UPPER [None]
  - HEADACHE [None]
  - SENSATION OF BLOOD FLOW [None]
  - VISUAL BRIGHTNESS [None]
